FAERS Safety Report 25744901 (Version 2)
Quarter: 2025Q3

REPORT INFORMATION
  Report Type: Spontaneous
  Country: US (occurrence: US)
  Receive Date: 20250901
  Receipt Date: 20250903
  Transmission Date: 20251021
  Serious: No
  Sender: ELI LILLY AND COMPANY
  Company Number: US-ELI_LILLY_AND_COMPANY-US202508028553

PATIENT
  Age: 75 Year
  Sex: Female

DRUGS (5)
  1. TERIPARATIDE [Suspect]
     Active Substance: TERIPARATIDE
     Indication: Product used for unknown indication
     Route: 065
  2. TERIPARATIDE [Suspect]
     Active Substance: TERIPARATIDE
     Indication: Product used for unknown indication
     Route: 065
  3. TERIPARATIDE [Suspect]
     Active Substance: TERIPARATIDE
     Route: 065
     Dates: start: 20250825
  4. TERIPARATIDE [Suspect]
     Active Substance: TERIPARATIDE
     Route: 065
     Dates: start: 20250825
  5. ELIQUIS [Concomitant]
     Active Substance: APIXABAN
     Indication: Haemorrhage prophylaxis
     Route: 065

REACTIONS (2)
  - Arthritis [Unknown]
  - Incorrect dose administered by device [Unknown]
